FAERS Safety Report 17068867 (Version 1)
Quarter: 2019Q4

REPORT INFORMATION
  Report Type: Spontaneous
  Country: US (occurrence: US)
  Receive Date: 20191124
  Receipt Date: 20191124
  Transmission Date: 20200122
  Serious: No
  Sender: FDA-Public Use
  Company Number: US-TEVA-2019-US-1139752

PATIENT
  Sex: Female

DRUGS (1)
  1. LORAZEPAM TABLET ACTAVIS [Suspect]
     Active Substance: LORAZEPAM
     Indication: ANXIETY
     Dosage: 1 MILLIGRAM DAILY;
     Route: 065
     Dates: start: 2009, end: 20190825

REACTIONS (2)
  - Asthenia [Unknown]
  - Headache [Unknown]
